FAERS Safety Report 9505428 (Version 1)
Quarter: 2013Q1

REPORT INFORMATION
  Report Type: Spontaneous
  Country: US (occurrence: None)
  Receive Date: 20130220
  Receipt Date: 20130220
  Transmission Date: 20140127
  Serious: No
  Sender: FDA-Public Use
  Company Number: 1000040277

PATIENT
  Sex: Female

DRUGS (4)
  1. VIIBRYD (VILAZODONE HYDROCHLORIDE) [Suspect]
  2. WARFARIN (WARFARIN) (WARFARIN) [Concomitant]
  3. CITRACAL (CALCIUM CITRATE) (CALCIUM CITRATE) [Concomitant]
  4. HYDROCODONE (HYDRCODONE) (HYDROCODONE) [Concomitant]

REACTIONS (1)
  - Nausea [None]
